FAERS Safety Report 23327882 (Version 2)
Quarter: 2024Q1

REPORT INFORMATION
  Report Type: Report from Study
  Country: CA (occurrence: CA)
  Receive Date: 20231221
  Receipt Date: 20240124
  Transmission Date: 20240409
  Serious: Yes (Hospitalization, Other)
  Sender: FDA-Public Use
  Company Number: CA-TAIHOP-2023-001814

PATIENT
  Age: 68 Year
  Sex: Male
  Weight: 111.8 kg

DRUGS (2)
  1. LONSURF [Suspect]
     Active Substance: TIPIRACIL HYDROCHLORIDE\TRIFLURIDINE
     Indication: Colorectal cancer metastatic
     Dosage: CURRENT CYCLE UNKNOWN
     Route: 048
     Dates: start: 20230213
  2. LONSURF [Suspect]
     Active Substance: TIPIRACIL HYDROCHLORIDE\TRIFLURIDINE
     Dosage: CYCLE UNKNOWN
     Route: 048

REACTIONS (7)
  - Staphylococcal infection [Unknown]
  - Nephrostomy [Unknown]
  - Internal haemorrhage [Unknown]
  - Abdominal pain upper [Unknown]
  - Cytopenia [Recovering/Resolving]
  - White blood cell count decreased [Unknown]
  - Fatigue [Unknown]

NARRATIVE: CASE EVENT DATE: 20230301
